FAERS Safety Report 6654335-2 (Version None)
Quarter: 2010Q1

REPORT INFORMATION
  Report Type: 
  Country: None (occurrence: None)
  Receive Date: 20100324
  Receipt Date: 20100310
  Transmission Date: 20100710
  Serious: Yes (Other)
  Sender: FDA-Public Use
  Company Number: GB-DEXPHARM-20100332

PATIENT
  Age: 41 Year
  Sex: Female

DRUGS (2)
  1. OMEPRAZOLE [Suspect]
     Dates: start: 20091101
  2. PENTASA [Suspect]

REACTIONS (1)
  - STEVENS-JOHNSON SYNDROME [None]
